FAERS Safety Report 7689099-7 (Version None)
Quarter: 2011Q3

REPORT INFORMATION
  Report Type: 
  Country: None (occurrence: None)
  Receive Date: 20110817
  Receipt Date: 20110811
  Transmission Date: 20111222
  Serious: Yes (Other)
  Sender: FDA-Public Use
  Company Number: US-MERCK-1108USA01591

PATIENT
  Age: 57 Year
  Sex: Male

DRUGS (4)
  1. ZETIA [Suspect]
     Indication: HYPERLIPIDAEMIA
     Route: 048
     Dates: start: 20110101, end: 20110811
  2. CARVEDILOL [Concomitant]
     Route: 065
  3. CRESTOR [Concomitant]
     Route: 065
  4. EFFIENT [Concomitant]
     Route: 065

REACTIONS (4)
  - WEIGHT DECREASED [None]
  - MALAISE [None]
  - INCREASED TENDENCY TO BRUISE [None]
  - HAEMORRHAGE [None]
